FAERS Safety Report 10492118 (Version 1)
Quarter: 2014Q4

REPORT INFORMATION
  Report Type: Spontaneous
  Country: US (occurrence: US)
  Receive Date: 20141002
  Receipt Date: 20141002
  Transmission Date: 20150528
  Serious: No
  Sender: FDA-Public Use
  Company Number: US-GLAXOSMITHKLINE-A1065599A

PATIENT
  Sex: Female

DRUGS (21)
  1. ZETIA [Concomitant]
     Active Substance: EZETIMIBE
  2. ADVAIR HFA [Suspect]
     Active Substance: FLUTICASONE PROPIONATE\SALMETEROL XINAFOATE
     Indication: CHRONIC OBSTRUCTIVE PULMONARY DISEASE
     Dosage: 1PUFF TWICE PER DAY
     Route: 055
     Dates: start: 2002
  3. NEXIUM [Concomitant]
     Active Substance: ESOMEPRAZOLE MAGNESIUM
  4. SPIRIVA [Concomitant]
     Active Substance: TIOTROPIUM BROMIDE MONOHYDRATE
  5. VERAPAMIL [Concomitant]
     Active Substance: VERAPAMIL HYDROCHLORIDE
  6. LASIX [Concomitant]
     Active Substance: FUROSEMIDE
  7. PLAVIX [Concomitant]
     Active Substance: CLOPIDOGREL BISULFATE
  8. SIMVASTATIN. [Concomitant]
     Active Substance: SIMVASTATIN
  9. OXYGEN. [Concomitant]
     Active Substance: OXYGEN
  10. TRAMADOL [Concomitant]
     Active Substance: TRAMADOL
  11. PROAIR HFA [Concomitant]
     Active Substance: ALBUTEROL SULFATE
  12. DETROL [Concomitant]
     Active Substance: TOLTERODINE TARTRATE
  13. IRON [Concomitant]
     Active Substance: IRON
  14. ASPIRIN. [Concomitant]
     Active Substance: ASPIRIN
  15. DALIRESP [Concomitant]
     Active Substance: ROFLUMILAST
  16. ZOLOFT [Concomitant]
     Active Substance: SERTRALINE HYDROCHLORIDE
  17. VITAMIN D [Concomitant]
     Active Substance: CHOLECALCIFEROL
  18. ALBUTEROL NEBULIZER [Concomitant]
     Active Substance: ALBUTEROL
  19. ALPRAZOLAM. [Concomitant]
     Active Substance: ALPRAZOLAM
  20. SINGULAIR [Concomitant]
     Active Substance: MONTELUKAST SODIUM
  21. KLONOPIN [Concomitant]
     Active Substance: CLONAZEPAM

REACTIONS (2)
  - Osteoarthritis [Not Recovered/Not Resolved]
  - Osteoporosis [Unknown]

NARRATIVE: CASE EVENT DATE: 2004
